FAERS Safety Report 5977398-6 (Version None)
Quarter: 2008Q4

REPORT INFORMATION
  Report Type: 
  Country: None (occurrence: None)
  Receive Date: 20081203
  Receipt Date: 20081201
  Transmission Date: 20090506
  Serious: Yes (Other)
  Sender: FDA-Public Use
  Company Number: PHEH2008US08429

PATIENT
  Sex: Male
  Weight: 63.492 kg

DRUGS (2)
  1. DIOVAN [Suspect]
     Indication: HYPERTENSION
     Dosage: 160 MG, QD
     Route: 048
     Dates: start: 20080730
  2. PROVENTIL-HFA [Suspect]
     Indication: DYSPNOEA
     Dosage: 2 PUFFS EVERY 6 HOURS AS NEEDED
     Dates: start: 20080528

REACTIONS (1)
  - INFERTILITY MALE [None]
